FAERS Safety Report 19762869 (Version 1)
Quarter: 2021Q3

REPORT INFORMATION
  Report Type: Spontaneous
  Country: US (occurrence: US)
  Receive Date: 20210825
  Receipt Date: 20210825
  Transmission Date: 20211014
  Serious: No
  Sender: FDA-Public Use
  Company Number: None

PATIENT
  Age: 71 Year
  Sex: Female

DRUGS (1)
  1. TREMFYA [Suspect]
     Active Substance: GUSELKUMAB
     Indication: PSORIASIS
     Dosage: OTHER FREQUENCY:EVERY 8 WEEKS;?
     Route: 058
     Dates: start: 202105

REACTIONS (7)
  - Injection site pain [None]
  - Wrong technique in product usage process [None]
  - Product dose omission issue [None]
  - Drug delivery system malfunction [None]
  - Incorrect dose administered [None]
  - Syringe issue [None]
  - Accidental exposure to product [None]

NARRATIVE: CASE EVENT DATE: 20210516
